FAERS Safety Report 5588348-9 (Version None)
Quarter: 2008Q1

REPORT INFORMATION
  Report Type: 
  Country: None (occurrence: None)
  Receive Date: 20080111
  Receipt Date: 20070924
  Transmission Date: 20080703
  Serious: Yes (Hospitalization)
  Sender: FDA-Public Use
  Company Number: A0684810A

PATIENT
  Age: 53 Year
  Sex: Female

DRUGS (1)
  1. TYKERB [Suspect]
     Dosage: 6TAB PER DAY
     Route: 048
     Dates: start: 20070907

REACTIONS (2)
  - NAUSEA [None]
  - VOMITING [None]
